FAERS Safety Report 5948094-6 (Version None)
Quarter: 2008Q4

REPORT INFORMATION
  Report Type: 
  Country: None (occurrence: None)
  Receive Date: 20081107
  Receipt Date: 20081024
  Transmission Date: 20090506
  Serious: Yes (Hospitalization)
  Sender: FDA-Public Use
  Company Number: 006#3#2008-00090

PATIENT
  Age: 91 Year
  Sex: Female

DRUGS (9)
  1. CORDIPATCH-10MG-24GH (GLYCERYL TRINITRATE) [Suspect]
     Indication: ANGINA PECTORIS
     Dosage: 10 MG TRANSDERMAL
     Route: 062
  2. FENTANYL-100 [Concomitant]
  3. MIANSERINE (MIANSERIN HYDROCHLORIDE) [Concomitant]
  4. FLUINDIONE (FLUINDIONE) [Concomitant]
  5. FUROSEMIDE [Concomitant]
  6. PERINDOPRIL ERBUMINE [Concomitant]
  7. FENOFIBRATE [Concomitant]
  8. CLONAZEPM (CLONAZEPAM) [Concomitant]
  9. TIMOLOL (TIMOLOL MALEATE) [Concomitant]

REACTIONS (6)
  - BILE DUCT STONE [None]
  - DRUG INTERACTION [None]
  - HEART RATE INCREASED [None]
  - INTERNATIONAL NORMALISED RATIO INCREASED [None]
  - SUBILEUS [None]
  - WEIGHT INCREASED [None]
